FAERS Safety Report 18727142 (Version 2)
Quarter: 2021Q1

REPORT INFORMATION
  Report Type: Other
  Country: AR (occurrence: AR)
  Receive Date: 20210112
  Receipt Date: 20210210
  Transmission Date: 20210419
  Serious: Yes (Hospitalization, Other)
  Sender: FDA-Public Use
  Company Number: AR-ROCHE-2746952

PATIENT
  Age: 56 Year
  Sex: Female

DRUGS (2)
  1. XOLAIR [Suspect]
     Active Substance: OMALIZUMAB
     Indication: ASTHMA
     Route: 058
     Dates: start: 20150101
  2. SYMBICORT [Concomitant]
     Active Substance: BUDESONIDE\FORMOTEROL FUMARATE DIHYDRATE
     Indication: PRODUCT USED FOR UNKNOWN INDICATION
     Dosage: 1 DF (IN THE MORNING AND IN THE NIGHT)
     Route: 065

REACTIONS (5)
  - Bronchitis [Recovered/Resolved]
  - Dyspnoea [Unknown]
  - COVID-19 [Unknown]
  - Bronchial hyperreactivity [Unknown]
  - Asthmatic crisis [Unknown]

NARRATIVE: CASE EVENT DATE: 20200910
